FAERS Safety Report 7570922-1 (Version None)
Quarter: 2011Q2

REPORT INFORMATION
  Report Type: 
  Country: None (occurrence: None)
  Receive Date: 20110622
  Receipt Date: 20110622
  Transmission Date: 20111010
  Serious: Yes (Other)
  Sender: FDA-Public Use
  Company Number: None

PATIENT
  Age: 69 Year
  Sex: Female

DRUGS (4)
  1. CYMBALTA [Suspect]
     Indication: DIABETES MELLITUS
     Dosage: WHEN WILL NOISE END TRAINS BANDS WALL SINK TOILET MEISA APPROX 12 DAYS AND COUNTING
     Route: 048
     Dates: start: 20110401, end: 20110513
  2. CYMBALTA [Suspect]
     Indication: DEPRESSION
     Dosage: WHEN WILL NOISE END TRAINS BANDS WALL SINK TOILET MEISA APPROX 12 DAYS AND COUNTING
     Route: 048
     Dates: start: 20110401, end: 20110513
  3. CYMBALTA [Suspect]
     Indication: DIABETES MELLITUS
     Dosage: WHEN WILL NOISE END TRAINS BANDS WALL SINK TOILET MEISA APPROX 12 DAYS AND COUNTING
     Route: 048
     Dates: start: 20110515
  4. CYMBALTA [Suspect]
     Indication: DEPRESSION
     Dosage: WHEN WILL NOISE END TRAINS BANDS WALL SINK TOILET MEISA APPROX 12 DAYS AND COUNTING
     Route: 048
     Dates: start: 20110515

REACTIONS (3)
  - SOMNOLENCE [None]
  - HALLUCINATIONS, MIXED [None]
  - FATIGUE [None]
